FAERS Safety Report 9140578 (Version 5)
Quarter: 2014Q4

REPORT INFORMATION
  Report Type: Spontaneous
  Country: US (occurrence: US)
  Receive Date: 20130305
  Receipt Date: 20141202
  Transmission Date: 20150529
  Serious: Yes (Hospitalization, Disabling, Other)
  Sender: FDA-Public Use
  Company Number: US-GLAXOSMITHKLINE-A0761939A

PATIENT
  Sex: Female

DRUGS (9)
  1. ADVAIR HFA [Suspect]
     Active Substance: FLUTICASONE PROPIONATE\SALMETEROL XINAFOATE
     Indication: CHRONIC OBSTRUCTIVE PULMONARY DISEASE
     Dosage: 1 DF, BID
     Route: 065
     Dates: start: 20090112
  2. VENTOLIN [Suspect]
     Active Substance: ALBUTEROL SULFATE
     Indication: PRODUCT USED FOR UNKNOWN INDICATION
     Dosage: UNK, U
     Route: 065
  3. XANAX [Concomitant]
     Active Substance: ALPRAZOLAM
  4. ADVAIR HFA [Suspect]
     Active Substance: FLUTICASONE PROPIONATE\SALMETEROL XINAFOATE
     Indication: ASTHMA
  5. HYDROCHLOROTHIAZIDE. [Concomitant]
     Active Substance: HYDROCHLOROTHIAZIDE
  6. ALBUTEROL. [Suspect]
     Active Substance: ALBUTEROL
     Indication: PRODUCT USED FOR UNKNOWN INDICATION
     Dosage: 1 DF, QID
     Route: 065
  7. ADVAIR HFA [Suspect]
     Active Substance: FLUTICASONE PROPIONATE\SALMETEROL XINAFOATE
     Indication: EMPHYSEMA
  8. LEVOTHYROXINE [Concomitant]
     Active Substance: LEVOTHYROXINE
  9. ASPIRIN (BABY) [Concomitant]

REACTIONS (13)
  - Dyspnoea [Unknown]
  - Fluid overload [Unknown]
  - Drug ineffective [Unknown]
  - Dehydration [Unknown]
  - Gallbladder operation [Recovered/Resolved]
  - Cardiac failure [Unknown]
  - Pain [Unknown]
  - Disability [Recovered/Resolved]
  - Pharyngeal oedema [Unknown]
  - Cardiac failure congestive [Unknown]
  - Overweight [Unknown]
  - Panic attack [Unknown]
  - Gallbladder perforation [Unknown]

NARRATIVE: CASE EVENT DATE: 2012
